FAERS Safety Report 7804206-0 (Version None)
Quarter: 2011Q4

REPORT INFORMATION
  Report Type: 
  Country: None (occurrence: None)
  Receive Date: 20111010
  Receipt Date: 20110928
  Transmission Date: 20120403
  Serious: Yes (Hospitalization)
  Sender: FDA-Public Use
  Company Number: ZA-SANOFI-AVENTIS-2011SA044127

PATIENT
  Age: 85 Year
  Sex: Male
  Weight: 75 kg

DRUGS (12)
  1. DRONEDARONE HCL [Suspect]
     Indication: ATRIAL FIBRILLATION
     Route: 048
     Dates: start: 20110309
  2. BISOPROLOL [Concomitant]
     Route: 065
  3. ATORVASTATIN [Concomitant]
     Route: 065
  4. SLOW-K [Concomitant]
     Route: 065
     Dates: end: 20110317
  5. CLOPIDOGREL [Concomitant]
     Route: 065
     Dates: end: 20110415
  6. CLOPIDOGREL [Concomitant]
     Route: 065
     Dates: start: 20110501, end: 20110516
  7. VERAPAMIL [Concomitant]
     Route: 065
     Dates: start: 20110317
  8. ASPIRIN [Concomitant]
     Route: 065
     Dates: end: 20110418
  9. ASPIRIN [Concomitant]
     Route: 065
     Dates: start: 20110501
  10. FUROSEMIDE [Concomitant]
     Route: 065
  11. CANDESARTAN CILEXETIL [Concomitant]
     Route: 065
  12. CALCIUM CHANNEL BLOCKERS [Concomitant]
     Route: 065
     Dates: start: 20110317

REACTIONS (2)
  - ANAEMIA [None]
  - GASTRIC HAEMORRHAGE [None]
